FAERS Safety Report 8447661-8 (Version None)
Quarter: 2012Q2

REPORT INFORMATION
  Report Type: 
  Country: None (occurrence: None)
  Receive Date: 20120619
  Receipt Date: 20120614
  Transmission Date: 20120825
  Serious: Yes (Hospitalization)
  Sender: FDA-Public Use
  Company Number: FR-PFIZER INC-2012143418

PATIENT
  Age: 75 Year
  Sex: Male

DRUGS (19)
  1. PRAXILENE [Concomitant]
     Dosage: 600 MG DAILY
  2. INSPRA [Concomitant]
     Dosage: 25 MG DAILY
  3. TAZOBACTAM [Suspect]
     Dosage: 4 G, 3X/DAY
     Route: 042
     Dates: start: 20111113, end: 20111126
  4. VANCOMYCIN [Suspect]
     Dosage: 250 MG, 3X/DAY
     Route: 042
     Dates: start: 20111113, end: 20111126
  5. ZOMETA [Suspect]
     Dosage: 4 MG, SINGLE
     Route: 042
     Dates: start: 20111128, end: 20111128
  6. LASIX [Concomitant]
     Dosage: 80 MG DAILY
  7. CRESTOR [Concomitant]
     Dosage: 10 MG DAILY
  8. PANTOPRAZOLE [Concomitant]
     Dosage: 40 MG, 2X/DAY
     Route: 048
     Dates: start: 20111114, end: 20111220
  9. PRIVIGEN [Concomitant]
     Dosage: 30 G
     Dates: start: 20111129
  10. AMOXICILLIN TRIHYDRATE [Suspect]
     Indication: PRODUCTIVE COUGH
     Dosage: 1 G, 2X/DAY
     Route: 048
     Dates: start: 20111128, end: 20111207
  11. ROWASA [Concomitant]
     Dosage: 1500 MG, 1X/DAY
     Route: 048
     Dates: start: 20111027, end: 20111219
  12. CALCIUM VITAMIN D3 [Concomitant]
     Dosage: 2 DOSAGE FORMS DAILY
  13. FERROUS SULFATE TAB [Concomitant]
     Dosage: 80 MG DAILY
  14. PREDNISOLONE [Concomitant]
     Dosage: 15 MG DAILY
  15. ASPIRIN [Concomitant]
     Dosage: 160 MG DAILY
  16. BISOPROLOL FUMARATE [Concomitant]
     Dosage: 2.5 MG DAILY
  17. ISOPTIN [Concomitant]
     Dosage: 240 MG DAILY
  18. PURINETHOL [Concomitant]
     Dosage: 100 MG DAILY
  19. RAMIPRIL [Concomitant]
     Dosage: 10 MG DAILY

REACTIONS (3)
  - TUBULOINTERSTITIAL NEPHRITIS [None]
  - DRUG RASH WITH EOSINOPHILIA AND SYSTEMIC SYMPTOMS [None]
  - SKIN TEST NEGATIVE [None]
